FAERS Safety Report 5512853-4 (Version None)
Quarter: 2007Q4

REPORT INFORMATION
  Report Type: 
  Country: None (occurrence: None)
  Receive Date: 20071112
  Receipt Date: 20071105
  Transmission Date: 20080405
  Serious: Yes (Other)
  Sender: FDA-Public Use
  Company Number: NZ-GENENTECH-246417

PATIENT
  Age: 28 Year
  Sex: Female

DRUGS (5)
  1. TRASTUZUMAB [Suspect]
     Indication: BREAST CANCER METASTATIC
     Dosage: 8 MG/M2, UNK
  2. TRASTUZUMAB [Suspect]
     Dosage: 520 MG, UNK
  3. TRASTUZUMAB [Suspect]
     Dosage: 170 MG, UNK
  4. DOCETAXEL [Concomitant]
     Indication: BREAST CANCER METASTATIC
     Dosage: 190 MG, UNK
  5. BETAMETHASONE [Concomitant]
     Indication: PREMATURE LABOUR
     Dosage: 11.4 MG, X2
     Route: 030

REACTIONS (4)
  - CONGENITAL ANOMALY [None]
  - DRUG EXPOSURE DURING PREGNANCY [None]
  - FOETAL GROWTH RETARDATION [None]
  - OLIGOHYDRAMNIOS [None]
